FAERS Safety Report 9281717 (Version 2)
Quarter: 2013Q3

REPORT INFORMATION
  Report Type: Spontaneous
  Country: US (occurrence: US)
  Receive Date: 20130510
  Receipt Date: 20130813
  Transmission Date: 20140515
  Serious: Yes (Hospitalization)
  Sender: FDA-Public Use
  Company Number: US-B.I. PHARMACEUTICALS,INC./RIDGEFIELD-2013-BI-12879BP

PATIENT
  Age: 81 Year
  Sex: Male
  Weight: 79.38 kg

DRUGS (10)
  1. PRADAXA [Suspect]
     Indication: ANTICOAGULANT THERAPY
     Dosage: 300 MG
     Route: 048
     Dates: start: 20110920, end: 20120511
  2. PRADAXA [Suspect]
     Indication: ATRIAL FIBRILLATION
  3. RAZADYNE ER [Concomitant]
     Dosage: 24 MG
     Route: 048
  4. VASOTEC [Concomitant]
     Indication: HYPERTENSION
     Dosage: 5 MG
  5. TOPROL-XL [Concomitant]
     Dosage: 40 MG
  6. PRAVASTATIN [Concomitant]
     Dosage: 10 MG
  7. REMERON [Concomitant]
     Dosage: 50 MG
  8. HCTZ [Concomitant]
     Dosage: 25 MG
  9. SINEMET [Concomitant]
     Indication: PARKINSON^S DISEASE
  10. REQUIP [Concomitant]
     Indication: PARKINSON^S DISEASE
     Dosage: 0.5 MG

REACTIONS (4)
  - Haematuria [Recovered/Resolved]
  - Sepsis [Unknown]
  - Urinary tract infection [Unknown]
  - Urethral haemorrhage [Unknown]
